FAERS Safety Report 13301394 (Version 1)
Quarter: 2017Q1

REPORT INFORMATION
  Report Type: Spontaneous
  Country: US (occurrence: US)
  Receive Date: 20170307
  Receipt Date: 20170307
  Transmission Date: 20170428
  Serious: No
  Sender: FDA-Public Use
  Company Number: US-DEPOMED, INC.-US-2016DEP010267

PATIENT

DRUGS (3)
  1. GRALISE [Suspect]
     Active Substance: GABAPENTIN
     Indication: NEUROPATHY PERIPHERAL
     Dosage: TITRATED UP TO 1200MG
     Route: 048
     Dates: start: 2014
  2. ASPIRIN                            /00002701/ [Concomitant]
     Active Substance: ASPIRIN
     Indication: BLOOD DISORDER
     Dosage: 162 MG, QD
     Route: 048
     Dates: start: 2012
  3. ENOXAPARIN [Concomitant]
     Active Substance: ENOXAPARIN
     Indication: BLOOD DISORDER
     Dosage: 40/0.4 MG/ML, PRN
     Route: 058
     Dates: start: 2013

REACTIONS (4)
  - Product used for unknown indication [Not Recovered/Not Resolved]
  - Chronic obstructive pulmonary disease [Not Recovered/Not Resolved]
  - Dyspnoea [Unknown]
  - Dyspepsia [Not Recovered/Not Resolved]

NARRATIVE: CASE EVENT DATE: 2014
